FAERS Safety Report 20029413 (Version 1)
Quarter: 2021Q4

REPORT INFORMATION
  Report Type: Spontaneous
  Country: US (occurrence: US)
  Receive Date: 20211103
  Receipt Date: 20211103
  Transmission Date: 20220303
  Serious: Yes (Hospitalization, Other)
  Sender: FDA-Public Use
  Company Number: US-PFIZER INC-202101420285

PATIENT
  Age: 46 Year
  Sex: Female
  Weight: 75.3 kg

DRUGS (26)
  1. CHANTIX [Suspect]
     Active Substance: VARENICLINE TARTRATE
     Indication: Smoking cessation therapy
     Dosage: UNK
     Dates: start: 20151208
  2. CHANTIX [Suspect]
     Active Substance: VARENICLINE TARTRATE
     Dosage: UNK
     Dates: start: 20161205
  3. CHANTIX [Suspect]
     Active Substance: VARENICLINE TARTRATE
     Dosage: UNK
     Dates: start: 20170308, end: 20210623
  4. ASPIRIN [Concomitant]
     Active Substance: ASPIRIN
     Dosage: 81 MG
  5. LIPITOR [Concomitant]
     Active Substance: ATORVASTATIN CALCIUM
     Dosage: 40 MG
  6. AZATHIOPRINE [Concomitant]
     Active Substance: AZATHIOPRINE
     Dosage: 150 MG, 2X/DAY (3 TABLET PER ORAL TWICE A DAY)
     Route: 048
  7. CALCIUM [Concomitant]
     Active Substance: CALCIUM
     Dosage: 500 MG
  8. DULAGLUTIDE [Concomitant]
     Active Substance: DULAGLUTIDE
     Dosage: 0.75MG/0.5MILLITER
  9. DULOXETINE [Concomitant]
     Active Substance: DULOXETINE
     Dosage: 60 MG, 1X/DAY
  10. EMPAGLIFLOZIN [Concomitant]
     Active Substance: EMPAGLIFLOZIN
     Dosage: 10 MG, 1X/DAY
  11. GABAPENTIN [Concomitant]
     Active Substance: GABAPENTIN
     Dosage: 100 MG, 3X/DAY
  12. HYDROXYCHLOROQUINE [Concomitant]
     Active Substance: HYDROXYCHLOROQUINE
     Dosage: 200 MG, 1X/DAY
  13. ISOSORBIDE MONONITRATE [Concomitant]
     Active Substance: ISOSORBIDE MONONITRATE
     Dosage: 15 MG, 2X/DAY (30MG I TAKE HALF TWICE A DAY)
  14. LISINOPRIL [Concomitant]
     Active Substance: LISINOPRIL
     Dosage: UNK, 1X/DAY
  15. LORAZEPAM [Concomitant]
     Active Substance: LORAZEPAM
     Dosage: 0.5 MG, AS NEEDED
  16. NALOXONE [Concomitant]
     Active Substance: NALOXONE
     Dosage: 4 MG, AS NEEDED
  17. NITROGLYCERIN [Concomitant]
     Active Substance: NITROGLYCERIN
     Dosage: UNK, AS NEEDED
  18. OXYCODONE [Concomitant]
     Active Substance: OXYCODONE
     Dosage: 5 MG
  19. ACETAMINOPHEN [Concomitant]
     Active Substance: ACETAMINOPHEN
     Dosage: 25 MG, 4X/DAY(25MG ONE TAB EVERY 6 HOURS AS NEEDED)
  20. PREDNISONE [Concomitant]
     Active Substance: PREDNISONE
     Dosage: 20 MG, 1X/DAY (5MG 4 TAB PER ORAL ONCE A DAY)
  21. PROPRANOLOL [Concomitant]
     Active Substance: PROPRANOLOL HYDROCHLORIDE
     Dosage: 120 MG, 1X/DAY
  22. BRILINTA [Concomitant]
     Active Substance: TICAGRELOR
     Dosage: 9 MG, 2X/DAY
  23. TOPIRAMATE [Concomitant]
     Active Substance: TOPIRAMATE
     Dosage: 50 MG, 1X/DAY
  24. ZOLPIDEM [Concomitant]
     Active Substance: ZOLPIDEM TARTRATE
     Dosage: 10 MG, 1X/DAY
  25. HYDROCORTISONE [Concomitant]
     Active Substance: HYDROCORTISONE
     Dosage: 2.5 MG, AS NEEDED (2.5 MG LOTION AS NEEDED)
  26. BUTALBITAL [Concomitant]
     Active Substance: BUTALBITAL
     Dosage: UNK, AS NEEDED (EVERY 4 HOURS AS NEEDED)

REACTIONS (3)
  - Myocardial infarction [Unknown]
  - Recalled product administered [Unknown]
  - Illness [Unknown]

NARRATIVE: CASE EVENT DATE: 20200101
